FAERS Safety Report 6230011-5 (Version None)
Quarter: 2009Q2

REPORT INFORMATION
  Report Type: 
  Country: None (occurrence: None)
  Receive Date: 20090615
  Receipt Date: 20090608
  Transmission Date: 20091009
  Serious: Yes (Death, Other)
  Sender: FDA-Public Use
  Company Number: US-AVENTIS-200915034US

PATIENT
  Sex: Female

DRUGS (1)
  1. LANTUS [Suspect]
     Dosage: DOSE: UNK
     Route: 058

REACTIONS (2)
  - CARDIAC FAILURE CONGESTIVE [None]
  - DEATH [None]
